FAERS Safety Report 8840075 (Version 1)
Quarter: 2012Q4

REPORT INFORMATION
  Report Type: 
  Country: US (occurrence: US)
  Receive Date: 20121015
  Receipt Date: 20121015
  Transmission Date: 20130627
  Serious: No
  Sender: FDA-Public Use
  Company Number: US-B.I. PHARMACEUTICALS,INC./RIDGEFIELD-2012-BP-25310BP

PATIENT
  Sex: Male
  Weight: 93 kg

DRUGS (3)
  1. PRADAXA [Suspect]
     Indication: ATRIAL FIBRILLATION
     Dosage: 300 mg
     Route: 048
     Dates: start: 201208
  2. VITAMINS [Concomitant]
     Route: 048
  3. PRILOSEC [Concomitant]
     Indication: DYSPEPSIA
     Route: 048

REACTIONS (2)
  - Sensation of foreign body [Recovered/Resolved]
  - Dyspepsia [Recovered/Resolved]
